FAERS Safety Report 13855087 (Version 7)
Quarter: 2017Q4

REPORT INFORMATION
  Report Type: Spontaneous
  Country: US (occurrence: US)
  Receive Date: 20170810
  Receipt Date: 20171226
  Transmission Date: 20180320
  Serious: Yes (Congenital Anomaly, Other)
  Sender: FDA-Public Use
  Company Number: PHEH2017US024949

PATIENT
  Sex: Female

DRUGS (2)
  1. ZOFRAN [Suspect]
     Active Substance: ONDANSETRON HYDROCHLORIDE
     Indication: FOETAL EXPOSURE DURING PREGNANCY
     Dosage: MOTHER^S DOSE: 1 DF, PRN
     Route: 064
  2. ONDANSETRON DR REDDY [Suspect]
     Active Substance: ONDANSETRON
     Indication: FOETAL EXPOSURE DURING PREGNANCY
     Dosage: MOTHER^S DOSE: 1 DF, PRN
     Route: 064

REACTIONS (13)
  - Diarrhoea neonatal [Unknown]
  - Tremor [Unknown]
  - Dyspnoea [Unknown]
  - Ventricular septal defect [Unknown]
  - Tachypnoea [Unknown]
  - Cardiac murmur [Unknown]
  - Pyrexia [Unknown]
  - Heart disease congenital [Unknown]
  - Atrial septal defect [Unknown]
  - Injury [Unknown]
  - Dermatitis diaper [Unknown]
  - Ear pain [Unknown]
  - Foetal exposure during pregnancy [Unknown]
